FAERS Safety Report 22796390 (Version 2)
Quarter: 2023Q4

REPORT INFORMATION
  Report Type: Report from Study
  Country: US (occurrence: US)
  Receive Date: 20230808
  Receipt Date: 20231003
  Transmission Date: 20240109
  Serious: Yes (Disabling)
  Sender: FDA-Public Use
  Company Number: US-ABBVIE-5356013

PATIENT
  Sex: Female

DRUGS (1)
  1. HUMIRA [Suspect]
     Active Substance: ADALIMUMAB
     Indication: Juvenile idiopathic arthritis
     Dosage: STRENGTH: 40 MG CITRATE FREE
     Route: 058

REACTIONS (3)
  - Inflammation [Unknown]
  - Neuritis [Unknown]
  - Deafness [Unknown]
